FAERS Safety Report 16411677 (Version 3)
Quarter: 2019Q2

REPORT INFORMATION
  Report Type: Spontaneous
  Country: JP (occurrence: JP)
  Receive Date: 20190610
  Receipt Date: 20190628
  Transmission Date: 20190711
  Serious: Yes (Death, Hospitalization, Disabling, Other)
  Sender: FDA-Public Use
  Company Number: JP-ELI_LILLY_AND_COMPANY-JP201905010174

PATIENT
  Age: 76 Year
  Sex: Male
  Weight: 64 kg

DRUGS (2)
  1. ERBITUX [Suspect]
     Active Substance: CETUXIMAB
     Indication: LARYNGEAL CANCER
     Dosage: 400 MG/M2, UNKNOWN
     Route: 041
     Dates: start: 20190319, end: 20190319
  2. ERBITUX [Suspect]
     Active Substance: CETUXIMAB
     Dosage: 250 MG/M2, WEEKLY (1/W)
     Route: 041
     Dates: start: 20190326, end: 20190430

REACTIONS (6)
  - Liver disorder [Unknown]
  - Renal disorder [Unknown]
  - Candida test positive [Unknown]
  - Klebsiella test positive [Unknown]
  - Circulatory collapse [Unknown]
  - Interstitial lung disease [Fatal]

NARRATIVE: CASE EVENT DATE: 201905
